FAERS Safety Report 13965040 (Version 1)
Quarter: 2017Q3

REPORT INFORMATION
  Report Type: Spontaneous
  Country: US (occurrence: US)
  Receive Date: 20170913
  Receipt Date: 20170913
  Transmission Date: 20171128
  Serious: No
  Sender: FDA-Public Use
  Company Number: US-JNJFOC-20170713312

PATIENT
  Sex: Male

DRUGS (2)
  1. DURAGESIC [Concomitant]
     Active Substance: FENTANYL
     Route: 065
  2. ZYTIGA [Suspect]
     Active Substance: ABIRATERONE ACETATE
     Indication: PROSTATE CANCER
     Route: 048
     Dates: start: 201509, end: 201702

REACTIONS (1)
  - Drug ineffective [Unknown]
